FAERS Safety Report 15866623 (Version 1)
Quarter: 2019Q1

REPORT INFORMATION
  Report Type: Spontaneous
  Country: US (occurrence: US)
  Receive Date: 20190125
  Receipt Date: 20190125
  Transmission Date: 20190417
  Serious: No
  Sender: FDA-Public Use
  Company Number: US-APOTEX-2019AP005286

PATIENT
  Sex: Female

DRUGS (1)
  1. CLOPIDOGREL [Suspect]
     Active Substance: CLOPIDOGREL BISULFATE
     Indication: PRODUCT USED FOR UNKNOWN INDICATION
     Dosage: 75 MG, UNK
     Route: 048

REACTIONS (7)
  - Urine output decreased [Unknown]
  - Fatigue [Unknown]
  - Abdominal pain upper [Unknown]
  - Dyspnoea [Unknown]
  - Epistaxis [Unknown]
  - Constipation [Unknown]
  - Nausea [Unknown]
